FAERS Safety Report 4595234-X (Version None)
Quarter: 2005Q1

REPORT INFORMATION
  Report Type: 
  Country: None (occurrence: None)
  Receive Date: 20050224
  Receipt Date: 20050211
  Transmission Date: 20050727
  Serious: Yes (Other)
  Sender: FDA-Public Use
  Company Number: 2004105663

PATIENT
  Age: 78 Year
  Sex: Female
  Weight: 59.8748 kg

DRUGS (22)
  1. TIKOSYN [Suspect]
     Indication: ARRHYTHMIA
     Dosage: 500 MCG (250 MCG, BID INTERVAL: EVERYDAY), ORAL
     Route: 048
     Dates: start: 20040601
  2. TIKOSYN [Suspect]
     Indication: ATRIAL FIBRILLATION
     Dosage: 500 MCG (250 MCG, BID INTERVAL: EVERYDAY), ORAL
     Route: 048
     Dates: start: 20040601
  3. IRON (IRON) [Suspect]
     Indication: ILL-DEFINED DISORDER
     Dosage: ORAL
     Route: 048
  4. GATIFLOXACIN [Suspect]
     Indication: INFECTION PROPHYLAXIS
     Dosage: 1 IN 4 D, OPHTHALMIC
     Route: 047
     Dates: start: 20050206
  5. DIGOXIN [Concomitant]
  6. ATENOLOL [Concomitant]
  7. WARFARIN SODIUM [Concomitant]
  8. THYROID TAB [Concomitant]
  9. OXYBUTYNIN CHLORIDE [Concomitant]
  10. CALCIUM (CALCIUM) [Concomitant]
  11. ASCORBIC ACID [Concomitant]
  12. TOCOPHEROL (TOCOPHEROL) [Concomitant]
  13. B-KOMPLEX ^LECIVA^ (CALCIUM PANTOTHENATE, NICOTINAMIDE, PYRIDOXINE HYD [Concomitant]
  14. DIPHENHYDRAMINE HCL [Concomitant]
  15. ACETAMINOPHEN [Concomitant]
  16. CYANOCOBALAMIN [Concomitant]
  17. MAGNESIUM HYDROXIDE (MAGNESIUM HYDROXIDE) [Concomitant]
  18. MAGNESIUM (MAGNESIUM) [Concomitant]
  19. LIGHT LIQUID PARAFFIN (LIGHT LIQUID PARAFFIN) [Concomitant]
  20. LORATADINE [Concomitant]
  21. VITAMINS (VITAMINS) [Concomitant]
  22. LORATADINE [Concomitant]

REACTIONS (5)
  - BLOOD PRESSURE INCREASED [None]
  - CATARACT [None]
  - CONSTIPATION [None]
  - DRUG INTERACTION [None]
  - HEART RATE INCREASED [None]
